FAERS Safety Report 5520589-9 (Version None)
Quarter: 2007Q4

REPORT INFORMATION
  Report Type: 
  Country: None (occurrence: None)
  Receive Date: 20071119
  Receipt Date: 20071107
  Transmission Date: 20080405
  Serious: Yes (Death, Hospitalization)
  Sender: FDA-Public Use
  Company Number: US-PFIZER INC-2007079764

PATIENT
  Sex: Male

DRUGS (1)
  1. BEXTRA [Suspect]
     Route: 048

REACTIONS (2)
  - CARDIAC DISORDER [None]
  - CARDIO-RESPIRATORY ARREST [None]
